FAERS Safety Report 12517942 (Version 4)
Quarter: 2016Q4

REPORT INFORMATION
  Report Type: Spontaneous
  Country: JP (occurrence: JP)
  Receive Date: 20160630
  Receipt Date: 20161020
  Transmission Date: 20170207
  Serious: Yes (Disabling, Other)
  Sender: FDA-Public Use
  Company Number: JP-ABBVIE-16P-087-1661260-00

PATIENT
  Age: 85 Year
  Sex: Female
  Weight: 39.5 kg

DRUGS (15)
  1. FEBUXOSTAT. [Concomitant]
     Active Substance: FEBUXOSTAT
     Indication: PRODUCT USED FOR UNKNOWN INDICATION
     Route: 048
  2. PREDNISOLONE. [Concomitant]
     Active Substance: PREDNISOLONE
     Indication: PRODUCT USED FOR UNKNOWN INDICATION
     Route: 048
  3. WARFARIN POTASSIUM [Concomitant]
     Active Substance: WARFARIN POTASSIUM
     Indication: PRODUCT USED FOR UNKNOWN INDICATION
     Route: 048
  4. MERCAZOLE [Suspect]
     Active Substance: CARBIMAZOLE
     Indication: PRODUCT USED FOR UNKNOWN INDICATION
     Route: 048
     Dates: end: 20160216
  5. VIEKIRAX [Suspect]
     Active Substance: OMBITASVIR\PARITAPREVIR\RITONAVIR
     Indication: CHRONIC HEPATITIS C
     Route: 048
     Dates: start: 20160104
  6. LANSOPRAZOLE. [Concomitant]
     Active Substance: LANSOPRAZOLE
     Indication: PRODUCT USED FOR UNKNOWN INDICATION
     Route: 048
  7. BROTIZOLAM [Interacting]
     Active Substance: BROTIZOLAM
     Indication: PRODUCT USED FOR UNKNOWN INDICATION
     Route: 048
  8. VIEKIRAX [Interacting]
     Active Substance: OMBITASVIR\PARITAPREVIR\RITONAVIR
     Route: 048
     Dates: start: 20160217, end: 20160307
  9. MERCAZOLE [Suspect]
     Active Substance: CARBIMAZOLE
     Route: 048
     Dates: start: 20160217, end: 20160322
  10. MERCAZOLE [Suspect]
     Active Substance: CARBIMAZOLE
     Route: 048
     Dates: start: 20160323, end: 20160417
  11. ELDECALCITOL [Concomitant]
     Active Substance: ELDECALCITOL
     Indication: PRODUCT USED FOR UNKNOWN INDICATION
     Route: 048
  12. KAKKONTO [Concomitant]
     Active Substance: HERBALS
     Indication: PRODUCT USED FOR UNKNOWN INDICATION
     Route: 048
  13. MERCAZOLE [Suspect]
     Active Substance: CARBIMAZOLE
     Route: 048
     Dates: start: 20160418, end: 20160529
  14. OLMESARTAN MEDOXOMIL. [Concomitant]
     Active Substance: OLMESARTAN MEDOXOMIL
     Indication: PRODUCT USED FOR UNKNOWN INDICATION
     Route: 048
  15. AZOSEMIDE [Concomitant]
     Active Substance: AZOSEMIDE
     Indication: PRODUCT USED FOR UNKNOWN INDICATION
     Route: 048

REACTIONS (7)
  - Drug interaction [Unknown]
  - Dementia [Recovering/Resolving]
  - Hepatic function abnormal [Recovered/Resolved]
  - Somnolence [Recovered/Resolved]
  - Spinal compression fracture [Recovered/Resolved with Sequelae]
  - Fall [Unknown]
  - Basedow^s disease [Recovering/Resolving]

NARRATIVE: CASE EVENT DATE: 20160118
